FAERS Safety Report 8394685-5 (Version None)
Quarter: 2012Q2

REPORT INFORMATION
  Report Type: 
  Country: None (occurrence: None)
  Receive Date: 20120525
  Receipt Date: 20120525
  Transmission Date: 20120825
  Serious: Yes (Hospitalization)
  Sender: FDA-Public Use
  Company Number: None

PATIENT
  Age: 45 Year
  Sex: Male
  Weight: 94.8018 kg

DRUGS (2)
  1. VOTRIENT [Suspect]
     Indication: SARCOMA
     Dosage: 800 MG DAILY PO
     Route: 048
     Dates: start: 20120515, end: 20120518
  2. WARFARIN SODIUM [Suspect]
     Indication: THROMBOSIS
     Dosage: GOAL INR 2 - 3 DAILY PO
     Route: 048

REACTIONS (5)
  - COMMUNICATION DISORDER [None]
  - PULMONARY ALVEOLAR HAEMORRHAGE [None]
  - UNRESPONSIVE TO STIMULI [None]
  - HAEMOPTYSIS [None]
  - LUNG CONSOLIDATION [None]
